FAERS Safety Report 24705198 (Version 1)
Quarter: 2024Q4

REPORT INFORMATION
  Report Type: Other
  Country: CA (occurrence: CA)
  Receive Date: 20241206
  Receipt Date: 20241206
  Transmission Date: 20250115
  Serious: Yes (Other)
  Sender: APOTEX
  Company Number: CA-APOTEX-2024AP019222

PATIENT
  Age: 29 Year
  Sex: Female

DRUGS (7)
  1. VALACYCLOVIR [Interacting]
     Active Substance: VALACYCLOVIR HYDROCHLORIDE
     Indication: Herpes simplex
     Dosage: 500 MILLIGRAM, QD
     Route: 048
  2. DANDELION [Interacting]
     Active Substance: TARAXACUM OFFICINALE POLLEN
     Indication: Dermatitis
     Dosage: UNK
     Route: 048
  3. GRAPE SEED EXTRACT [VITIS VINIFERA SEED] [Concomitant]
     Indication: Product used for unknown indication
     Dosage: UNK
     Route: 065
  4. DIETARY SUPPLEMENT\HERBALS\MILK THISTLE [Concomitant]
     Active Substance: MILK THISTLE
     Indication: Product used for unknown indication
     Dosage: UNK
     Route: 065
  5. POLYSPORIN TRIPLE ANTIBIOTIC [Concomitant]
     Indication: Product used for unknown indication
     Dosage: UNK
     Route: 065
  6. VITAFUSION MULTIVITES [Concomitant]
     Indication: Product used for unknown indication
     Dosage: UNK
     Route: 065
  7. HERBALS [Concomitant]
     Active Substance: HERBALS
     Indication: Product used for unknown indication
     Dosage: UNK
     Route: 065

REACTIONS (2)
  - Coagulation time prolonged [Recovering/Resolving]
  - Drug interaction [Recovering/Resolving]
